FAERS Safety Report 9448198 (Version 1)
Quarter: 2013Q3

REPORT INFORMATION
  Report Type: Spontaneous
  Country: US (occurrence: None)
  Receive Date: 20130807
  Receipt Date: 20130807
  Transmission Date: 20140515
  Serious: No
  Sender: FDA-Public Use
  Company Number: None

PATIENT
  Age: 7 Year
  Sex: Male
  Weight: 38.1 kg

DRUGS (1)
  1. DEPAKOTE SPRINKLES [Suspect]
     Indication: CONVULSION
     Dosage: 375 MG BID ORAL
     Route: 048
     Dates: start: 20070130, end: 20090114

REACTIONS (2)
  - Convulsion [None]
  - Product substitution issue [None]
